FAERS Safety Report 9121138 (Version 4)
Quarter: 2013Q1

REPORT INFORMATION
  Report Type: Spontaneous
  Country: JP (occurrence: JP)
  Receive Date: 20130226
  Receipt Date: 20130326
  Transmission Date: 20140127
  Serious: Yes (Hospitalization)
  Sender: FDA-Public Use
  Company Number: JP-009507513-1302JPN010864

PATIENT
  Age: 57 Year
  Sex: Female
  Weight: 44 kg

DRUGS (3)
  1. SINGULAIR [Suspect]
     Indication: ASTHMA
     Dosage: 10 MG/DAY
     Route: 048
     Dates: start: 201103
  2. THEOPHYLLINE [Concomitant]
     Indication: ASTHMA
     Dosage: UNK
     Route: 048
     Dates: start: 1998
  3. CICLESONIDE [Concomitant]
     Indication: ASTHMA
     Dosage: UNK
     Route: 045
     Dates: start: 1998

REACTIONS (1)
  - Allergic granulomatous angiitis [Recovered/Resolved]
